FAERS Safety Report 9979384 (Version 2)
Quarter: 2014Q1

REPORT INFORMATION
  Report Type: Report from Study
  Country: US (occurrence: US)
  Receive Date: 20140306
  Receipt Date: 20140306
  Transmission Date: 20141002
  Serious: No
  Sender: FDA-Public Use
  Company Number: US-ABBVIE-13P-163-1155764-00

PATIENT
  Age: 64 Year
  Sex: Female

DRUGS (9)
  1. HUMIRA [Suspect]
     Indication: CROHN^S DISEASE
     Dosage: 160 MG DAY 1
     Dates: start: 20130725, end: 20130725
  2. HUMIRA [Suspect]
     Dosage: 80 MG DAY 15
  3. HUMIRA [Suspect]
  4. NEURONTIN [Concomitant]
     Indication: NERVOUS SYSTEM DISORDER
     Dosage: 300 ONE PILL TWICE DAILY
  5. NORTRIPTYLINE [Concomitant]
     Indication: GASTROINTESTINAL DISORDER
     Dosage: ONE PILL TWICE DAILY
  6. LEXAPRO [Concomitant]
     Indication: ANXIETY
  7. CLONAZEPAM [Concomitant]
     Indication: INSOMNIA
     Dosage: BED TIME
  8. NEXIUM [Concomitant]
     Indication: GASTROOESOPHAGEAL REFLUX DISEASE
  9. NORVASC [Concomitant]
     Indication: HYPERTENSION

REACTIONS (5)
  - Sleep disorder [Not Recovered/Not Resolved]
  - Abdominal pain [Not Recovered/Not Resolved]
  - Nausea [Not Recovered/Not Resolved]
  - Crohn^s disease [Not Recovered/Not Resolved]
  - Injection site pain [Not Recovered/Not Resolved]
